FAERS Safety Report 9163500 (Version 1)
Quarter: 2013Q1

REPORT INFORMATION
  Report Type: Spontaneous
  Country: NL (occurrence: None)
  Receive Date: 20130221
  Receipt Date: 20130221
  Transmission Date: 20140127
  Serious: Yes (Other)
  Sender: FDA-Public Use
  Company Number: 2013-02582

PATIENT
  Sex: Male

DRUGS (1)
  1. PANTOPRAZOLE SODIUM (UNKNOWN)(PANTOPRAZOLE SODIUM) UNK, UNKUNK [Suspect]
     Indication: ABDOMINAL DISCOMFORT

REACTIONS (1)
  - Gastrointestinal haemorrhage [None]
